FAERS Safety Report 5209142-4 (Version None)
Quarter: 2007Q1

REPORT INFORMATION
  Report Type: 
  Country: None (occurrence: None)
  Receive Date: 20070116
  Receipt Date: 20070110
  Transmission Date: 20070707
  Serious: Yes (Hospitalization)
  Sender: FDA-Public Use
  Company Number: IE-MERCK-0612GBR00019

PATIENT
  Age: 55 Year
  Sex: Male

DRUGS (16)
  1. SINGULAIR [Suspect]
     Indication: ASTHMA
     Route: 048
     Dates: start: 20030624, end: 20061101
  2. CALCIUM D3 [Concomitant]
     Route: 048
  3. FOSAMAX [Concomitant]
     Route: 048
  4. FORTISIP [Concomitant]
     Route: 048
  5. SEPTRIN [Concomitant]
     Route: 048
  6. [THERAPY UNSPECIFIED] [Concomitant]
     Route: 048
  7. SERETIDE [Concomitant]
     Dates: start: 20011207
  8. LYRICA [Concomitant]
     Route: 048
  9. TRAMADOL HCL [Concomitant]
     Route: 048
  10. PROCHLORPERAZINE [Concomitant]
     Route: 048
  11. DELTACORTRIL [Concomitant]
     Route: 048
  12. DELTACORTRIL [Concomitant]
     Route: 048
  13. DELTACORTRIL [Concomitant]
     Route: 048
  14. CYCLOPHOSPHAMIDE [Concomitant]
     Route: 042
  15. ATROVENT [Concomitant]
     Route: 065
     Dates: start: 20031215
  16. DEXA-RHINASPRAY [Concomitant]
     Route: 065
     Dates: start: 20031215

REACTIONS (1)
  - ALLERGIC GRANULOMATOUS ANGIITIS [None]
